FAERS Safety Report 9433762 (Version 2)
Quarter: 2013Q3

REPORT INFORMATION
  Report Type: Spontaneous
  Country: GB (occurrence: None)
  Receive Date: 20130729
  Receipt Date: 20130814
  Transmission Date: 20140515
  Serious: Yes (Hospitalization)
  Sender: FDA-Public Use
  Company Number: GB-RRD-13-00006

PATIENT
  Age: 14 Year
  Sex: Male

DRUGS (15)
  1. COSMEGEN [Suspect]
     Indication: SARCOMA
     Route: 040
     Dates: start: 20121102
  2. VINCRISTINE (VINCRISTINE) (UNKNOWN) [Suspect]
     Indication: SARCOMA
     Dosage: 2 MG, DAY 1, DAY 8 AND DAY 15
     Route: 040
     Dates: start: 20121102
  3. DOXORUBICIN (DOXORUBICIN) (DOXORUBICIN) [Suspect]
     Indication: SARCOMA
     Route: 042
     Dates: start: 20121102, end: 20121102
  4. MOVICOL (POLYETHYL.GLYC. W/POTAS. CHLOR./SOD.BICARB.) )SODIUM BICARBONATE, POTASSIUM CHLORIDE, MACROGOL) [Concomitant]
  5. LACTULOSE (LACTULOSE) (LACTULOSE) [Concomitant]
  6. SENNA (SENNA ALEXANDRINA) (SENNA ALEXANDRINA) [Concomitant]
  7. ONDANSETRON (ONDANSETRON) (ONDANSETRON) [Concomitant]
  8. CYCLIZINE (CYCLIZINE) (TABLETS) (CYCLIZINE) [Concomitant]
  9. PARACETAMOL (PARACETAMOL) (TABLETS) (PARACETAMOL) [Concomitant]
  10. MORPHINE SULPHATE SR (MORPHINE SULFATE) (MORPHINE SULFATE) [Concomitant]
  11. BISACODYL (BISACODYL) (BISACODYL) [Concomitant]
  12. ZOMORPH (MORPHINE SULFATE) (MORPHINE SULFATE) [Concomitant]
  13. SEPTRIN (BACTRIM) (SULFAMETHOXAZOLE, TRIMETHOPRIM) [Concomitant]
  14. GELCLAIR (GELCLAIR HYALURONATE SODIUM) [Concomitant]
  15. IFOSFAMIDE (IFOSFAMIDE) [Suspect]
     Indication: SARCOMA
     Dosage: (4800 MG ON DAY 1 AND DAY 2)
     Route: 042
     Dates: start: 20121102, end: 20121103

REACTIONS (6)
  - Febrile neutropenia [None]
  - Headache [None]
  - Haemoglobin decreased [None]
  - Chills [None]
  - Tachycardia [None]
  - Sepsis [None]
